FAERS Safety Report 7095569-5 (Version None)
Quarter: 2010Q4

REPORT INFORMATION
  Report Type: 
  Country: None (occurrence: None)
  Receive Date: 20101111
  Receipt Date: 20101102
  Transmission Date: 20110411
  Serious: Yes (Hospitalization, Other)
  Sender: FDA-Public Use
  Company Number: NL-ASTRAZENECA-2010SE50773

PATIENT
  Age: 18460 Day
  Sex: Male
  Weight: 90 kg

DRUGS (4)
  1. CRESTOR [Suspect]
     Indication: HYPERCHOLESTEROLAEMIA
     Route: 048
     Dates: start: 20090324, end: 20100515
  2. SELOKOMB [Concomitant]
     Indication: HYPERTENSION
     Dosage: 100/12.5
     Route: 048
     Dates: start: 20080101
  3. ASCAL [Concomitant]
     Indication: PERCUTANEOUS CORONARY INTERVENTION
     Dosage: 100
     Route: 048
     Dates: start: 20080101
  4. AMLODYPINE [Concomitant]
     Indication: HYPERTENSION
     Dosage: 10
     Route: 048
     Dates: start: 20080101

REACTIONS (1)
  - WEGENER'S GRANULOMATOSIS [None]
